FAERS Safety Report 8079145-3 (Version None)
Quarter: 2012Q1

REPORT INFORMATION
  Report Type: 
  Country: None (occurrence: None)
  Receive Date: 20120128
  Receipt Date: 20110819
  Transmission Date: 20120608
  Serious: No
  Sender: FDA-Public Use
  Company Number: US-ABBOTT-11P-163-0847946-00

PATIENT
  Age: 44 Year
  Sex: Female

DRUGS (9)
  1. HUMIRA [Suspect]
     Indication: CROHN'S DISEASE
     Dates: start: 20110721
  2. VITAMIN D [Concomitant]
     Indication: VITAMIN D DECREASED
  3. TYLENOL W/ CODEINE NO. 3 [Concomitant]
     Indication: OVARIAN MASS
     Dosage: PRN
  4. MULTIVITAMIN [Concomitant]
     Indication: PRODUCT USED FOR UNKNOWN INDICATION
  5. BENADRYL [Concomitant]
     Indication: HYPERSENSITIVITY
     Dosage: PRN
  6. VIT C W/FESOL [Concomitant]
     Indication: BLOOD IRON DECREASED
  7. SUDAFED 12 HOUR [Concomitant]
     Indication: HYPERSENSITIVITY
     Dosage: PRN
  8. COLAZAL [Concomitant]
     Indication: CROHN'S DISEASE
     Dosage: 750  MG DAILY
  9. SYNTHROID [Concomitant]
     Indication: HYPOTHYROIDISM

REACTIONS (6)
  - CHEST DISCOMFORT [None]
  - INJECTION SITE PRURITUS [None]
  - INJECTION SITE ERYTHEMA [None]
  - MALAISE [None]
  - PAIN IN EXTREMITY [None]
  - PRURITUS [None]
